FAERS Safety Report 9944401 (Version 1)
Quarter: 2014Q1

REPORT INFORMATION
  Report Type: Report from Study
  Country: US (occurrence: US)
  Receive Date: 20140303
  Receipt Date: 20140303
  Transmission Date: 20141002
  Serious: No
  Sender: FDA-Public Use
  Company Number: US-ABBVIE-13P-163-1048701-00

PATIENT
  Age: 60 Year
  Sex: Female
  Weight: 48.12 kg

DRUGS (6)
  1. HUMIRA [Suspect]
     Indication: RHEUMATOID ARTHRITIS
     Dates: start: 201212, end: 201301
  2. THYROID MEDICATION [Concomitant]
     Indication: HYPOTHYROIDISM
  3. LOSARTAN [Concomitant]
     Indication: HYPERTENSION
  4. UNKNOWN PAIN MEDICATION [Concomitant]
     Indication: PAIN
  5. IBUPROFEN [Concomitant]
     Indication: PAIN
     Dosage: 1 EVERY 8 HOURS AS NEEDED
  6. OMEPRAZOLE [Concomitant]
     Indication: PROPHYLAXIS AGAINST GASTROINTESTINAL ULCER

REACTIONS (2)
  - Ear pain [Recovered/Resolved]
  - Sinusitis [Recovered/Resolved]
